FAERS Safety Report 9283843 (Version 2)
Quarter: 2013Q2

REPORT INFORMATION
  Report Type: Report from Study
  Country: IT (occurrence: IT)
  Receive Date: 20130510
  Receipt Date: 20130619
  Transmission Date: 20140414
  Serious: Yes (Hospitalization, Other)
  Sender: FDA-Public Use
  Company Number: IT-GLAXOSMITHKLINE-B0890195A

PATIENT
  Age: 60 Year
  Sex: Male
  Weight: 100 kg

DRUGS (5)
  1. OFATUMUMAB [Suspect]
     Indication: B-CELL LYMPHOMA
     Dosage: 300MG CYCLIC
     Route: 042
     Dates: start: 20130328
  2. BENDAMUSTINE [Suspect]
     Indication: B-CELL LYMPHOMA
     Dosage: 90MGM2 CYCLIC
     Route: 042
     Dates: start: 20130329
  3. LAMIVUDINE-HBV [Concomitant]
     Indication: ANTIVIRAL PROPHYLAXIS
     Dosage: 100MG PER DAY
     Route: 048
  4. FLUCONAZOLE [Concomitant]
     Indication: PROPHYLAXIS
     Dosage: 200MG PER DAY
     Route: 048
  5. OMEPRAZOLE [Concomitant]
     Indication: PROPHYLAXIS
     Dosage: 20MG PER DAY
     Route: 048

REACTIONS (4)
  - Neutropenia [Not Recovered/Not Resolved]
  - Thrombocytopenia [Recovered/Resolved]
  - Septic shock [Recovered/Resolved]
  - Renal failure acute [Recovering/Resolving]
